FAERS Safety Report 6867650-4 (Version None)
Quarter: 2010Q3

REPORT INFORMATION
  Report Type: 
  Country: None (occurrence: None)
  Receive Date: 20100722
  Receipt Date: 20091130
  Transmission Date: 20110219
  Serious: No
  Sender: FDA-Public Use
  Company Number: US-BAUSCH-2009BL006331

PATIENT
  Age: 44 Year
  Sex: Female

DRUGS (4)
  1. OPCON-A [Suspect]
     Indication: OCULAR HYPERAEMIA
     Route: 047
     Dates: start: 20091030, end: 20091129
  2. OPCON-A [Suspect]
     Indication: EYE IRRITATION
     Route: 047
     Dates: start: 20091030, end: 20091129
  3. NORTREL /USA/ [Concomitant]
     Indication: CONTRACEPTION
     Route: 048
  4. VENLAFAXINE [Concomitant]
     Indication: ANXIETY
     Route: 048

REACTIONS (1)
  - EYE IRRITATION [None]
